FAERS Safety Report 18630899 (Version 1)
Quarter: 2020Q4

REPORT INFORMATION
  Report Type: Spontaneous
  Country: US (occurrence: US)
  Receive Date: 20201217
  Receipt Date: 20201217
  Transmission Date: 20210114
  Serious: Yes (Hospitalization)
  Sender: FDA-Public Use
  Company Number: US-ELI_LILLY_AND_COMPANY-US202012005246

PATIENT
  Age: 88 Year
  Sex: Male

DRUGS (1)
  1. BAMLANIVIMAB 700MG [Suspect]
     Active Substance: BAMLANIVIMAB
     Indication: COVID-19
     Dosage: 700 MG, SINGLE
     Route: 042
     Dates: start: 20201207, end: 20201207

REACTIONS (5)
  - Chills [Unknown]
  - Hypotension [Unknown]
  - Dyspnoea [Unknown]
  - Hypoxia [Unknown]
  - Malaise [Unknown]
